FAERS Safety Report 24690694 (Version 1)
Quarter: 2024Q4

REPORT INFORMATION
  Report Type: Spontaneous
  Country: US (occurrence: US)
  Receive Date: 20241203
  Receipt Date: 20241203
  Transmission Date: 20250115
  Serious: No
  Sender: ELI LILLY AND COMPANY
  Company Number: US-ELI_LILLY_AND_COMPANY-US202412001191

PATIENT
  Age: 83 Year
  Sex: Female

DRUGS (2)
  1. BASAGLAR [Suspect]
     Active Substance: INSULIN GLARGINE
     Indication: Product used for unknown indication
     Dosage: 24 U, UNKNOWN
     Route: 065
     Dates: start: 202407
  2. BASAGLAR [Suspect]
     Active Substance: INSULIN GLARGINE
     Dosage: 24 U, UNKNOWN
     Route: 065
     Dates: start: 202407

REACTIONS (2)
  - Memory impairment [Unknown]
  - Hypoacusis [Unknown]
